FAERS Safety Report 25373705 (Version 2)
Quarter: 2025Q3

REPORT INFORMATION
  Report Type: Spontaneous
  Country: US (occurrence: US)
  Receive Date: 20250529
  Receipt Date: 20250830
  Transmission Date: 20251020
  Serious: No
  Sender: LUPIN
  Company Number: US-LUPIN PHARMACEUTICALS INC.-2025-04329

PATIENT
  Age: 63 Year
  Weight: 68.934 kg

DRUGS (7)
  1. ALBUTEROL SULFATE [Suspect]
     Active Substance: ALBUTEROL SULFATE
     Indication: Asthma
  2. CHLORPROMAZINE [Concomitant]
     Active Substance: CHLORPROMAZINE
     Indication: Product used for unknown indication
     Route: 065
  3. CLONIDINE [Concomitant]
     Active Substance: CLONIDINE
     Indication: Product used for unknown indication
     Route: 065
  4. Serozil [Concomitant]
     Indication: Sleep disorder
     Route: 065
  5. VITAMIN D [Concomitant]
     Active Substance: VITAMIN D NOS
     Indication: Product used for unknown indication
     Route: 065
  6. PRESTO [Concomitant]
     Active Substance: ZINC OXIDE
     Indication: Product used for unknown indication
     Route: 065
  7. MONTELUKAST [Concomitant]
     Active Substance: MONTELUKAST
     Indication: Product used for unknown indication
     Route: 065

REACTIONS (5)
  - Wrong technique in product usage process [Unknown]
  - Product packaging quantity issue [Unknown]
  - Device occlusion [Unknown]
  - Device defective [Unknown]
  - No adverse event [Unknown]
